FAERS Safety Report 5811634-1 (Version None)
Quarter: 2008Q3

REPORT INFORMATION
  Report Type: 
  Country: None (occurrence: None)
  Receive Date: 20080711
  Receipt Date: 20080711
  Transmission Date: 20090109
  Serious: Yes (Hospitalization, Disabling)
  Sender: FDA-Public Use
  Company Number: None

PATIENT
  Age: 79 Year
  Sex: Female
  Weight: 69.4003 kg

DRUGS (1)
  1. LEVAQUIN [Suspect]
     Indication: THERAPEUTIC PROCEDURE
     Dosage: 750 MG
     Dates: start: 20070327

REACTIONS (4)
  - ABASIA [None]
  - BALANCE DISORDER [None]
  - CHILLS [None]
  - DYSSTASIA [None]
